FAERS Safety Report 9794354 (Version 2)
Quarter: 2014Q1

REPORT INFORMATION
  Report Type: Spontaneous
  Country: US (occurrence: US)
  Receive Date: 20140102
  Receipt Date: 20140102
  Transmission Date: 20141002
  Serious: Yes (Other)
  Sender: FDA-Public Use
  Company Number: CHPA2013US016245

PATIENT
  Sex: Female

DRUGS (4)
  1. MAALOX ANTACID/ANTIGAS MAX LIQ [Suspect]
     Dosage: UNK, UNK
     Route: 048
  2. MAALOX UNKNOWN [Suspect]
     Dosage: 1 DF, UNK
     Route: 048
     Dates: end: 201312
  3. LYRICA [Suspect]
     Indication: NEURALGIA
  4. DEXILANT [Concomitant]
     Indication: PAIN
     Route: 048

REACTIONS (10)
  - Nerve injury [Unknown]
  - Hiatus hernia [Not Recovered/Not Resolved]
  - Neuralgia [Unknown]
  - Gastritis [Not Recovered/Not Resolved]
  - Nervous system disorder [Unknown]
  - Pain [Not Recovered/Not Resolved]
  - Vomiting [Unknown]
  - Abdominal pain upper [Recovered/Resolved]
  - Therapeutic response unexpected [Unknown]
  - Expired drug administered [Unknown]
